FAERS Safety Report 8334944-5 (Version None)
Quarter: 2012Q2

REPORT INFORMATION
  Report Type: 
  Country: None (occurrence: None)
  Receive Date: 20120503
  Receipt Date: 20120424
  Transmission Date: 20120825
  Serious: Yes (Other)
  Sender: FDA-Public Use
  Company Number: CA-JNJFOC-20120411732

PATIENT
  Sex: Female
  Weight: 65.5 kg

DRUGS (9)
  1. ZOCOR [Concomitant]
  2. ALTACE [Concomitant]
  3. REMICADE [Suspect]
     Indication: RHEUMATOID ARTHRITIS
     Route: 042
  4. REMICADE [Suspect]
     Dosage: TOTAL OF 73 DOSES AT THIS DATE
     Route: 042
     Dates: start: 20120424
  5. METHOTREXATE [Concomitant]
  6. ASPIRIN [Concomitant]
  7. AMITRIPTYLINE HCL [Concomitant]
  8. FOLIC ACID [Concomitant]
  9. BISOPROLOL FUMARATE [Concomitant]

REACTIONS (1)
  - SKIN CANCER [None]
